FAERS Safety Report 24037802 (Version 2)
Quarter: 2024Q3

REPORT INFORMATION
  Report Type: Other
  Country: US (occurrence: US)
  Receive Date: 20240702
  Receipt Date: 20240705
  Transmission Date: 20241017
  Serious: Yes (Death, Other)
  Sender: INTERCEPT PHARMACEUTICALS
  Company Number: US-INTERCEPT-PM2024001288

PATIENT
  Age: 86 Year
  Sex: Female

DRUGS (1)
  1. OCALIVA [Suspect]
     Active Substance: OBETICHOLIC ACID
     Indication: Primary biliary cholangitis
     Dosage: 5 MILLIGRAM, QD
     Route: 048
     Dates: start: 20180808

REACTIONS (2)
  - Death [Fatal]
  - Lung neoplasm malignant [Unknown]

NARRATIVE: CASE EVENT DATE: 20240515
